FAERS Safety Report 4337622-2 (Version None)
Quarter: 2004Q2

REPORT INFORMATION
  Report Type: 
  Country: None (occurrence: None)
  Receive Date: 20040413
  Receipt Date: 20030923
  Transmission Date: 20050107
  Serious: No
  Sender: FDA-Public Use
  Company Number: US-GLAXOSMITHKLINE-A0427078A

PATIENT
  Age: 54 Year
  Sex: Male

DRUGS (1)
  1. DEXEDRINE [Suspect]
     Indication: NARCOLEPSY

REACTIONS (1)
  - PALPITATIONS [None]
